FAERS Safety Report 8101622-7 (Version None)
Quarter: 2012Q1

REPORT INFORMATION
  Report Type: 
  Country: None (occurrence: None)
  Receive Date: 20120129
  Receipt Date: 20111011
  Transmission Date: 20120608
  Serious: No
  Sender: FDA-Public Use
  Company Number: US-ABBOTT-11P-163-0863215-00

PATIENT
  Age: 57 Year
  Sex: Female

DRUGS (12)
  1. PROTONIX [Concomitant]
     Indication: GASTROOESOPHAGEAL REFLUX DISEASE
  2. TRIAMCINOLONE [Concomitant]
     Indication: BIOPSY
     Dosage: APPLY TO AFFECTED AREA (BIOPSY BACKSIDE)
  3. HUMIRA [Suspect]
     Indication: COLITIS ULCERATIVE
     Dates: start: 20111004
  4. WARFARIN SODIUM [Concomitant]
     Indication: THROMBOSIS
     Dosage: AT 6 PM
  5. COLCHICINE [Concomitant]
     Indication: GOUT
     Dosage: TWICE DAILY AS NEEDED
  6. FOLIC ACID [Concomitant]
     Indication: PRODUCT USED FOR UNKNOWN INDICATION
  7. LEXAPRO [Concomitant]
     Indication: DEPRESSION
  8. BENADRYL [Concomitant]
     Indication: HYPERSENSITIVITY
  9. TRAMADOL HCL [Concomitant]
     Indication: PAIN
     Dosage: EVERY 6 HOURS AS NEEDED
  10. DICYCLOMINE [Concomitant]
     Indication: ABDOMINAL PAIN UPPER
  11. IMODIUM [Concomitant]
     Indication: DIARRHOEA
  12. CLINDAMYCIN [Concomitant]
     Indication: ACNE
     Route: 061

REACTIONS (2)
  - NIGHT SWEATS [None]
  - CHILLS [None]
